FAERS Safety Report 21490932 (Version 1)
Quarter: 2022Q4

REPORT INFORMATION
  Report Type: Other
  Country: US (occurrence: None)
  Receive Date: 20221021
  Receipt Date: 20221021
  Transmission Date: 20230112
  Serious: Yes (Death)
  Sender: FDA-Public Use
  Company Number: US-ROCHE-3202969

PATIENT
  Age: 43 Year
  Sex: Female
  Weight: 55.025 kg

DRUGS (16)
  1. XELODA [Suspect]
     Active Substance: CAPECITABINE
     Indication: Breast cancer female
     Dosage: TAKE 2 TABLET(S) BY MOUTH TWICE A DAY ON DAYS 1-14 EVERY 21 DAYS
     Route: 048
     Dates: start: 20210624, end: 20220616
  2. XELODA [Suspect]
     Active Substance: CAPECITABINE
     Indication: Breast cancer
  3. XELODA [Suspect]
     Active Substance: CAPECITABINE
     Indication: Iron deficiency anaemia
  4. PERJETA [Suspect]
     Active Substance: PERTUZUMAB
     Indication: Neoplasm malignant
     Route: 065
     Dates: start: 20200820, end: 20220415
  5. PERJETA [Suspect]
     Active Substance: PERTUZUMAB
     Indication: Brain neoplasm malignant
  6. PERJETA [Suspect]
     Active Substance: PERTUZUMAB
     Indication: Iron deficiency anaemia
  7. DEXAMETHASONE [Concomitant]
     Active Substance: DEXAMETHASONE
     Route: 048
  8. HYDROCODONE [Concomitant]
     Active Substance: HYDROCODONE
     Route: 048
  9. ACETAMINOPHEN [Concomitant]
     Active Substance: ACETAMINOPHEN
     Route: 048
  10. LIDOCAINE [Concomitant]
     Active Substance: LIDOCAINE
  11. MECLIZINE [Concomitant]
     Active Substance: MECLIZINE HYDROCHLORIDE
     Route: 048
  12. NORCO [Concomitant]
     Active Substance: ACETAMINOPHEN\HYDROCODONE BITARTRATE
     Route: 048
  13. ONDANSETRON HCL [Concomitant]
     Active Substance: ONDANSETRON HYDROCHLORIDE
     Route: 048
  14. PROCHLORPERAZINE MALEATE [Concomitant]
     Active Substance: PROCHLORPERAZINE MALEATE
     Route: 048
  15. TAMOXIFEN [Concomitant]
     Active Substance: TAMOXIFEN
     Route: 048
  16. TUKYSA [Concomitant]
     Active Substance: TUCATINIB
     Route: 048

REACTIONS (1)
  - Death [Fatal]
